FAERS Safety Report 7689842-7 (Version None)
Quarter: 2011Q3

REPORT INFORMATION
  Report Type: 
  Country: None (occurrence: None)
  Receive Date: 20110818
  Receipt Date: 20110811
  Transmission Date: 20111222
  Serious: Yes (Hospitalization)
  Sender: FDA-Public Use
  Company Number: US-BIOGENIDEC-2009BI019831

PATIENT
  Age: 63 Year
  Sex: Female

DRUGS (4)
  1. BACLOFEN [Concomitant]
     Indication: MUSCLE SPASMS
  2. AVONEX [Suspect]
     Route: 030
     Dates: start: 20110225
  3. AVONEX [Suspect]
     Indication: MULTIPLE SCLEROSIS
     Route: 030
     Dates: start: 20011204, end: 20030101
  4. AVONEX [Suspect]
     Route: 030
     Dates: start: 20030101, end: 20110101

REACTIONS (15)
  - ROAD TRAFFIC ACCIDENT [None]
  - PAIN [None]
  - JOINT DISLOCATION [None]
  - UPPER LIMB FRACTURE [None]
  - LOWER LIMB FRACTURE [None]
  - DEMYELINATION [None]
  - SPINAL FRACTURE [None]
  - ENDOTRACHEAL INTUBATION COMPLICATION [None]
  - OPEN FRACTURE [None]
  - ATROPHY [None]
  - NEUROPATHY PERIPHERAL [None]
  - CONCUSSION [None]
  - RIB FRACTURE [None]
  - VISUAL IMPAIRMENT [None]
  - FATIGUE [None]
